FAERS Safety Report 12884013 (Version 1)
Quarter: 2016Q4

REPORT INFORMATION
  Report Type: Spontaneous
  Country: US (occurrence: US)
  Receive Date: 20161026
  Receipt Date: 20161026
  Transmission Date: 20170207
  Serious: No
  Sender: FDA-Public Use
  Company Number: US-PFIZER INC-2016496007

PATIENT
  Age: 92 Year
  Sex: Female
  Weight: 52 kg

DRUGS (1)
  1. MARCAINE [Suspect]
     Active Substance: BUPIVACAINE HYDROCHLORIDE
     Indication: JOINT ARTHROPLASTY
     Dosage: UNK
     Route: 039

REACTIONS (1)
  - Drug ineffective [Unknown]
